FAERS Safety Report 24215399 (Version 1)
Quarter: 2024Q3

REPORT INFORMATION
  Report Type: Spontaneous
  Country: US (occurrence: US)
  Receive Date: 20240816
  Receipt Date: 20240816
  Transmission Date: 20241017
  Serious: Yes (Death)
  Sender: PACIRA
  Company Number: US-ORG100016242-2024000523

PATIENT
  Age: 98 Year
  Sex: Female

DRUGS (1)
  1. ZILRETTA [Suspect]
     Active Substance: TRIAMCINOLONE ACETONIDE
     Indication: Product used for unknown indication
     Dosage: NOT PROVIDED
     Route: 050
     Dates: start: 20230808, end: 20230808

REACTIONS (1)
  - Death [Fatal]

NARRATIVE: CASE EVENT DATE: 20240303
